FAERS Safety Report 5382436-8 (Version None)
Quarter: 2007Q2

REPORT INFORMATION
  Report Type: 
  Country: None (occurrence: None)
  Receive Date: 20070629
  Receipt Date: 20060919
  Transmission Date: 20071010
  Serious: Yes (Other)
  Sender: FDA-Public Use
  Company Number: 2006113015

PATIENT
  Age: 20 Year
  Sex: Female
  Weight: 84.369 kg

DRUGS (2)
  1. ZOLOFT [Suspect]
     Indication: ANXIETY
     Dosage: 100 MG (100 MG, 1 IN 1 D), ORAL
     Route: 048
     Dates: start: 20060101, end: 20060101
  2. XANAX [Suspect]
     Indication: ANXIETY
     Dosage: 1 MG, (1 MG, 1 IN 1 D), ORAL
     Route: 048
     Dates: start: 20060101

REACTIONS (1)
  - GRAND MAL CONVULSION [None]
